FAERS Safety Report 4430845-3 (Version None)
Quarter: 2004Q3

REPORT INFORMATION
  Report Type: 
  Country: None (occurrence: None)
  Receive Date: 20040823
  Receipt Date: 20040525
  Transmission Date: 20050211
  Serious: Yes (Other)
  Sender: FDA-Public Use
  Company Number: CA-GLAXOSMITHKLINE-A0512169A

PATIENT
  Age: 55 Year
  Sex: Male
  Weight: 102.7 kg

DRUGS (10)
  1. AVANDIA [Suspect]
     Dosage: 8MG PER DAY
     Route: 048
     Dates: start: 20030115, end: 20040525
  2. METFORMIN HCL [Concomitant]
     Dosage: 500MG TWICE PER DAY
     Route: 048
     Dates: start: 19960807
  3. PRAVACHOL [Concomitant]
     Dosage: 20MG AT NIGHT
     Route: 048
     Dates: start: 19981124
  4. FENOFIBRATE [Concomitant]
     Dosage: 200MG PER DAY
     Route: 048
     Dates: start: 20000118
  5. TADALAFIL [Concomitant]
     Dosage: 20MG AS REQUIRED
     Route: 048
     Dates: start: 20040225
  6. ALLOPURINOL [Concomitant]
     Indication: GOUT
     Dosage: 300MG PER DAY
     Route: 048
     Dates: start: 19960625
  7. ACCURETIC [Concomitant]
     Indication: HYPERTENSION
     Route: 048
     Dates: start: 20001205
  8. LIPIDIL [Concomitant]
     Dosage: 200MG PER DAY
     Route: 048
  9. ASPIRIN [Concomitant]
     Dosage: 81MG PER DAY
     Route: 065
  10. METOPROLOL [Concomitant]
     Dosage: 25MG TWICE PER DAY
     Route: 048

REACTIONS (5)
  - ANAEMIA [None]
  - BLOOD CREATININE INCREASED [None]
  - DYSPNOEA EXERTIONAL [None]
  - HAEMOGLOBIN DECREASED [None]
  - ORTHOPNOEA [None]
